FAERS Safety Report 11250801 (Version 1)
Quarter: 2015Q3

REPORT INFORMATION
  Report Type: Spontaneous
  Country: US (occurrence: US)
  Receive Date: 20150708
  Receipt Date: 20150708
  Transmission Date: 20151125
  Serious: No
  Sender: FDA-Public Use
  Company Number: US-ELI_LILLY_AND_COMPANY-US201104000887

PATIENT
  Age: 30 Year
  Sex: Female
  Weight: 99.77 kg

DRUGS (2)
  1. SYMBYAX [Suspect]
     Active Substance: FLUOXETINE HYDROCHLORIDE\OLANZAPINE
     Indication: BIPOLAR II DISORDER
     Dosage: 6/25 MG, EVERY NIGHT AT BEDTIME
     Route: 065
     Dates: start: 20110127, end: 20110329
  2. DEPAKOTE ER [Concomitant]
     Active Substance: DIVALPROEX SODIUM
     Dosage: 500 MG, EVERY NIGHT AT BEDTIME
     Route: 048
     Dates: start: 20101129

REACTIONS (4)
  - Weight increased [Recovered/Resolved]
  - Medical diet [Recovered/Resolved]
  - Hypertension [Recovered/Resolved]
  - Increased appetite [Recovered/Resolved]
